FAERS Safety Report 4624883-5 (Version None)
Quarter: 2005Q2

REPORT INFORMATION
  Report Type: 
  Country: None (occurrence: None)
  Receive Date: 20050401
  Receipt Date: 20050322
  Transmission Date: 20051028
  Serious: Yes (Hospitalization)
  Sender: FDA-Public Use
  Company Number: US-BRISTOL-MYERS SQUIBB COMPANY-12908885

PATIENT
  Age: 56 Year
  Sex: Male

DRUGS (18)
  1. CISPLATIN [Suspect]
  2. IMODIUM [Concomitant]
     Indication: DIARRHOEA
     Route: 048
     Dates: start: 20030506
  3. ABH [Concomitant]
     Indication: VOMITING
     Route: 048
     Dates: start: 20030501
  4. PROCHLORPERAZINE EDISYLATE [Concomitant]
     Indication: VOMITING
     Route: 048
     Dates: start: 20030424
  5. ZOFRAN [Concomitant]
     Indication: VOMITING
     Route: 048
     Dates: start: 20030425
  6. PROTONIX [Concomitant]
     Indication: GASTROOESOPHAGEAL REFLUX DISEASE
     Route: 048
     Dates: start: 20030426
  7. EPOGEN [Concomitant]
  8. DILAUDID [Concomitant]
  9. BISACODYL [Concomitant]
  10. COMPAZINE [Concomitant]
  11. ATIVAN [Concomitant]
  12. BENADRYL [Concomitant]
  13. HALDOL [Concomitant]
  14. PROCRIT [Concomitant]
  15. FORTAZ [Concomitant]
  16. LEVAQUIN [Concomitant]
  17. ACETAMINOPHEN [Concomitant]
  18. DURAGESIC-100 [Concomitant]

REACTIONS (13)
  - ANOREXIA [None]
  - ASTHENIA [None]
  - DEHYDRATION [None]
  - DIARRHOEA [None]
  - FATIGUE [None]
  - FEBRILE NEUTROPENIA [None]
  - NAUSEA [None]
  - NEUTROPENIA [None]
  - RASH [None]
  - SMALL INTESTINAL OBSTRUCTION [None]
  - STOMATITIS [None]
  - UPPER RESPIRATORY TRACT INFECTION [None]
  - VOMITING [None]
